FAERS Safety Report 5315872-6 (Version None)
Quarter: 2007Q2

REPORT INFORMATION
  Report Type: 
  Country: None (occurrence: None)
  Receive Date: 20070503
  Receipt Date: 20070430
  Transmission Date: 20071010
  Serious: Yes (Hospitalization, Other)
  Sender: FDA-Public Use
  Company Number: NLWYE566106FEB04

PATIENT
  Sex: Male

DRUGS (6)
  1. RAPAMUNE [Suspect]
     Indication: PROPHYLAXIS AGAINST TRANSPLANT REJECTION
     Dosage: 15 MG
     Route: 048
     Dates: start: 20030801, end: 20030801
  2. RAPAMUNE [Suspect]
     Dosage: 12 MG
     Route: 048
     Dates: start: 20030801, end: 20030801
  3. RAPAMUNE [Suspect]
     Route: 048
     Dates: start: 20030829, end: 20040115
  4. PREDNISONE [Concomitant]
     Indication: RENAL TRANSPLANT
  5. DACLIZUMAB [Concomitant]
     Indication: RENAL TRANSPLANT
     Dosage: 1 MG/KG
  6. MYCOPHENOLATE MOFETIL [Concomitant]
     Indication: RENAL TRANSPLANT

REACTIONS (3)
  - KIDNEY TRANSPLANT REJECTION [None]
  - MICROANGIOPATHY [None]
  - OEDEMA [None]
